FAERS Safety Report 9985897 (Version 1)
Quarter: 2014Q1

REPORT INFORMATION
  Report Type: Other
  Country: JP (occurrence: JP)
  Receive Date: 20140307
  Receipt Date: 20140307
  Transmission Date: 20141002
  Serious: Yes (Hospitalization, Other)
  Sender: FDA-Public Use
  Company Number: JP-BRISTOL-MYERS SQUIBB COMPANY-20407581

PATIENT
  Age: 76 Year
  Sex: Female

DRUGS (2)
  1. METGLUCO [Suspect]
     Dosage: 1 DF= 20000 MG(250 X 80 IN 1D)
     Route: 048
  2. PIOGLITAZONE HCL [Concomitant]
     Dosage: 600 MG (15MG, 40 IN 1 D);TAB
     Route: 048

REACTIONS (4)
  - Metabolic acidosis [Recovered/Resolved]
  - Multi-organ failure [Unknown]
  - Suicide attempt [Unknown]
  - Intentional overdose [Unknown]
